FAERS Safety Report 14303609 (Version 1)
Quarter: 2017Q4

REPORT INFORMATION
  Report Type: Spontaneous
  Country: US (occurrence: US)
  Receive Date: 20171219
  Receipt Date: 20171219
  Transmission Date: 20180321
  Serious: Yes (Hospitalization)
  Sender: FDA-Public Use
  Company Number: None

PATIENT
  Age: 54 Year
  Sex: Male
  Weight: 76 kg

DRUGS (2)
  1. NIVOLUMAB [Suspect]
     Active Substance: NIVOLUMAB
     Dates: start: 20171201
  2. IPILIMUMAB [Suspect]
     Active Substance: IPILIMUMAB
     Indication: METASTATIC MALIGNANT MELANOMA
     Dates: start: 20171201

REACTIONS (11)
  - Abdominal pain [None]
  - Blood pressure decreased [None]
  - Diarrhoea [None]
  - Pruritus [None]
  - Dyspnoea [None]
  - Asthenia [None]
  - Throat tightness [None]
  - Lacrimation increased [None]
  - Infusion related reaction [None]
  - Flushing [None]
  - Hypoaesthesia oral [None]

NARRATIVE: CASE EVENT DATE: 20171201
